FAERS Safety Report 14946982 (Version 3)
Quarter: 2018Q3

REPORT INFORMATION
  Report Type: Spontaneous
  Country: US (occurrence: US)
  Receive Date: 20180529
  Receipt Date: 20180914
  Transmission Date: 20181010
  Serious: Yes (Other)
  Sender: FDA-Public Use
  Company Number: PHEH2018US020649

PATIENT
  Age: 27 Year
  Sex: Female
  Weight: 72.57 kg

DRUGS (1)
  1. ZOFRAN [Suspect]
     Active Substance: ONDANSETRON HYDROCHLORIDE
     Indication: VOMITING IN PREGNANCY
     Dosage: 8 MG, QD
     Route: 048
     Dates: start: 20061110

REACTIONS (5)
  - Maternal exposure during pregnancy [Unknown]
  - Injury [Unknown]
  - Emotional distress [Unknown]
  - Product use in unapproved indication [Unknown]
  - Premature delivery [Unknown]

NARRATIVE: CASE EVENT DATE: 20070501
